FAERS Safety Report 6752995-9 (Version None)
Quarter: 2010Q2

REPORT INFORMATION
  Report Type: 
  Country: None (occurrence: None)
  Receive Date: 20100602
  Receipt Date: 20100602
  Transmission Date: 20101027
  Serious: Yes (Life-Threatening, Hospitalization)
  Sender: FDA-Public Use
  Company Number: None

PATIENT
  Sex: Female
  Weight: 62.7 kg

DRUGS (2)
  1. BENICAR HCT [Suspect]
     Indication: HYPERTENSION
     Dosage: 40/25 DAILY ORALLY
     Route: 048
     Dates: start: 20060501, end: 20090219
  2. BENICAR HCT [Suspect]
     Indication: HYPERTENSION
     Dosage: 40/25 DAILY ORALLY
     Route: 048
     Dates: start: 20090330, end: 20090515

REACTIONS (4)
  - BLOOD ELECTROLYTES ABNORMAL [None]
  - BLOOD POTASSIUM DECREASED [None]
  - COLITIS COLLAGENOUS [None]
  - MALNUTRITION [None]
